FAERS Safety Report 9886537 (Version 1)
Quarter: 2014Q1

REPORT INFORMATION
  Report Type: Spontaneous
  Country: US (occurrence: US)
  Receive Date: 20140210
  Receipt Date: 20140210
  Transmission Date: 20141002
  Serious: Yes (Other)
  Sender: FDA-Public Use
  Company Number: US-PFIZER INC-2014037320

PATIENT
  Age: 52 Year
  Sex: Female
  Weight: 68.03 kg

DRUGS (4)
  1. NEURONTIN [Suspect]
     Dosage: UNK
     Route: 048
     Dates: start: 2012
  2. ZYRTEC-D [Concomitant]
     Dosage: UNK, 2X/DAY
  3. AMITRIPTYLINE [Concomitant]
     Dosage: 20 MG, UNK
  4. PROZAC [Concomitant]
     Dosage: 50 MG, 1X/DAY

REACTIONS (4)
  - Accident [Unknown]
  - Fall [Unknown]
  - Head injury [Unknown]
  - Drug ineffective [Unknown]
